FAERS Safety Report 7398965-1 (Version None)
Quarter: 2011Q1

REPORT INFORMATION
  Report Type: 
  Country: None (occurrence: None)
  Receive Date: 20110328
  Receipt Date: 20110309
  Transmission Date: 20110831
  Serious: Yes (Death)
  Sender: FDA-Public Use
  Company Number: 2011P1004875

PATIENT
  Age: 26 Year
  Sex: Male

DRUGS (4)
  1. MORPHINE (NO PREF. NAME) [Suspect]
     Dosage: PO
     Route: 048
  2. DEXTROAMPHETAMINE SACCHARATE, AMPHETAMINE ASPARTATE MONOHYDRATE, DEXTR [Suspect]
     Dosage: PO
     Route: 048
  3. MARIJUANA (NO PREF. NAME) [Suspect]
     Dosage: PO
     Route: 048
  4. HYDROCODONE BITARTRATE AND ACETAMINOPHEN (NO PREF. NAME) [Suspect]
     Dosage: PO
     Route: 048

REACTIONS (3)
  - RESPIRATORY ARREST [None]
  - CARDIAC ARREST [None]
  - MULTIPLE DRUG OVERDOSE INTENTIONAL [None]
